FAERS Safety Report 8256090-1 (Version None)
Quarter: 2012Q2

REPORT INFORMATION
  Report Type: 
  Country: None (occurrence: None)
  Receive Date: 20120403
  Receipt Date: 20120319
  Transmission Date: 20120825
  Serious: Yes (Hospitalization)
  Sender: FDA-Public Use
  Company Number: TW-ROCHE-1053861

PATIENT
  Sex: Female
  Weight: 37 kg

DRUGS (1)
  1. RANIBIZUMAB [Suspect]
     Indication: AGE-RELATED MACULAR DEGENERATION
     Route: 050
     Dates: start: 20110810

REACTIONS (6)
  - SPINAL OSTEOARTHRITIS [None]
  - OSTEOPOROSIS [None]
  - DIAPHRAGMATIC HERNIA [None]
  - ANGINA UNSTABLE [None]
  - PNEUMOMEDIASTINUM [None]
  - SCOLIOSIS [None]
